FAERS Safety Report 4557935-9 (Version None)
Quarter: 2005Q1

REPORT INFORMATION
  Report Type: 
  Country: None (occurrence: None)
  Receive Date: 20050121
  Receipt Date: 20040213
  Transmission Date: 20050727
  Serious: No
  Sender: FDA-Public Use
  Company Number: US-BRISTOL-MYERS SQUIBB COMPANY-12508800

PATIENT
  Age: 52 Year
  Sex: Male
  Weight: 113 kg

DRUGS (2)
  1. SERZONE [Suspect]
     Indication: DEPRESSION
     Dosage: AT BEDTIME
     Route: 048
     Dates: start: 19990101
  2. BUSPAR [Concomitant]
     Indication: ANXIETY
     Route: 048

REACTIONS (2)
  - DRUG INEFFECTIVE [None]
  - FEELING ABNORMAL [None]
